FAERS Safety Report 8805827 (Version 1)
Quarter: 2012Q4

REPORT INFORMATION
  Report Type: Spontaneous
  Country: CN (occurrence: None)
  Receive Date: 20120917
  Receipt Date: 20120917
  Transmission Date: 20130627
  Serious: Yes (Hospitalization)
  Sender: FDA-Public Use
  Company Number: DKLU1084573

PATIENT
  Age: 67 Year
  Sex: Male

DRUGS (2)
  1. ONFI [Suspect]
  2. LEVETIRACETAM [Suspect]

REACTIONS (2)
  - Treatment failure [None]
  - Acidosis hyperchloraemic [None]
